FAERS Safety Report 18471171 (Version 2)
Quarter: 2020Q4

REPORT INFORMATION
  Report Type: Spontaneous
  Country: US (occurrence: US)
  Receive Date: 20201105
  Receipt Date: 20201224
  Transmission Date: 20210114
  Serious: Yes (Death, Hospitalization, Other)
  Sender: FDA-Public Use
  Company Number: US-009507513-2010USA012019

PATIENT
  Sex: Male
  Weight: 68.03 kg

DRUGS (3)
  1. ENALAPRIL [Concomitant]
     Active Substance: ENALAPRIL
     Indication: HYPERTENSION
     Dosage: UNK
     Dates: start: 20140519, end: 20180609
  2. JANUMET XR [Suspect]
     Active Substance: METFORMIN HYDROCHLORIDE\SITAGLIPTIN PHOSPHATE
     Indication: TYPE 2 DIABETES MELLITUS
     Route: 048
  3. JANUMET [Suspect]
     Active Substance: METFORMIN HYDROCHLORIDE\SITAGLIPTIN PHOSPHATE
     Indication: TYPE 2 DIABETES MELLITUS
     Dosage: DOSE: 1000 MG, ONCE DAILY
     Route: 048
     Dates: start: 20150110, end: 20180726

REACTIONS (19)
  - Pneumonia [Unknown]
  - Death [Fatal]
  - Adenocarcinoma pancreas [Unknown]
  - Gastritis [Unknown]
  - Hypoparathyroidism [Unknown]
  - Prostatic calcification [Unknown]
  - Incorrect dose administered [Unknown]
  - Metastases to liver [Unknown]
  - Enostosis [Unknown]
  - Pain [Unknown]
  - Atelectasis [Unknown]
  - Hydronephrosis [Unknown]
  - Gastric ulcer [Recovered/Resolved]
  - Osteoarthritis [Unknown]
  - Nephrocalcinosis [Unknown]
  - Blood cholesterol increased [Recovered/Resolved]
  - Abdominal discomfort [Unknown]
  - Constipation [Unknown]
  - Hiatus hernia [Unknown]

NARRATIVE: CASE EVENT DATE: 2015
